FAERS Safety Report 8922211 (Version 1)
Quarter: 2012Q4

REPORT INFORMATION
  Report Type: 
  Country: US (occurrence: US)
  Receive Date: 20121123
  Receipt Date: 20121123
  Transmission Date: 20130627
  Serious: Yes (Other)
  Sender: FDA-Public Use
  Company Number: PHEH2012US021934

PATIENT
  Sex: Female

DRUGS (4)
  1. EXTAVIA [Suspect]
     Indication: MULTIPLE SCLEROSIS
     Dosage: 0.062 mg, QOD
     Route: 058
     Dates: start: 20121026
  2. EXTAVIA [Suspect]
     Dosage: 0.25 ml, QOD
     Route: 058
  3. EXTAVIA [Suspect]
     Dosage: 0.125 mg, QOD
     Route: 058
  4. IBUPROFEN [Concomitant]
     Dosage: UNK UKN, Q6H

REACTIONS (8)
  - Fall [Not Recovered/Not Resolved]
  - Foot fracture [Not Recovered/Not Resolved]
  - Hyperaesthesia [Not Recovered/Not Resolved]
  - Balance disorder [Not Recovered/Not Resolved]
  - Nausea [Not Recovered/Not Resolved]
  - Dizziness [Recovering/Resolving]
  - Back pain [Not Recovered/Not Resolved]
  - Headache [Not Recovered/Not Resolved]
